FAERS Safety Report 16189768 (Version 2)
Quarter: 2019Q2

REPORT INFORMATION
  Report Type: Spontaneous
  Country: SE (occurrence: SE)
  Receive Date: 20190412
  Receipt Date: 20190619
  Transmission Date: 20190711
  Serious: Yes (Other)
  Sender: FDA-Public Use
  Company Number: SE-MYLANLABS-2019M1034573

PATIENT
  Age: 41 Year
  Sex: Male

DRUGS (8)
  1. NOVOMIX [Concomitant]
     Active Substance: INSULIN ASPART
     Dosage: UNK
  2. NOVORAPID [Concomitant]
     Active Substance: INSULIN ASPART
     Dosage: UNK
  3. ESCITALOPRAM [Concomitant]
     Active Substance: ESCITALOPRAM OXALATE
     Dosage: 5 MILLIGRAM, QD
  4. RISPERIDONE. [Suspect]
     Active Substance: RISPERIDONE
     Indication: ANXIETY
     Dosage: 1X2
     Route: 048
     Dates: start: 201711, end: 201810
  5. RISPERIDONE. [Suspect]
     Active Substance: RISPERIDONE
     Dosage: 1X2
     Dates: start: 20180129, end: 20181031
  6. IKTORIVIL [Concomitant]
     Active Substance: CLONAZEPAM
     Dosage: 0.5 MILLIGRAM, QD
  7. ERGENYL [Concomitant]
     Active Substance: VALPROIC ACID
     Dosage: 900 MILLIGRAM, QD
  8. RISPERIDONE. [Suspect]
     Active Substance: RISPERIDONE
     Dosage: UNK

REACTIONS (2)
  - Bladder dilatation [Unknown]
  - Urinary retention [Recovered/Resolved]

NARRATIVE: CASE EVENT DATE: 20180804
